FAERS Safety Report 18555005 (Version 3)
Quarter: 2020Q4

REPORT INFORMATION
  Report Type: Report from Study
  Country: DE (occurrence: DE)
  Receive Date: 20201127
  Receipt Date: 20201210
  Transmission Date: 20210114
  Serious: Yes (Hospitalization, Other)
  Sender: FDA-Public Use
  Company Number: DE-AMGEN-DEUCT2020192089

PATIENT
  Age: 54 Year
  Sex: Male
  Weight: 86 kg

DRUGS (9)
  1. CARFILZOMIB [Suspect]
     Active Substance: CARFILZOMIB
     Indication: PLASMA CELL MYELOMA
     Dosage: 75 MILLIGRAM, PER CHEMO REGIM
     Route: 042
     Dates: start: 20200716
  2. ELOTUZUMAB. [Suspect]
     Active Substance: ELOTUZUMAB
     Indication: PLASMA CELL MYELOMA
     Dosage: 810 MILLIGRAM, PER CHEMO REGIM
     Route: 042
     Dates: start: 20200716
  3. CYCLOPHOSPHAMID HEXAL [Suspect]
     Active Substance: CYCLOPHOSPHAMIDE
     Indication: BLOOD STEM CELL HARVEST
     Dosage: 2610 UNK, 1
     Route: 042
     Dates: start: 20201106, end: 20201106
  4. NACL [Concomitant]
     Active Substance: SODIUM CHLORIDE
     Dosage: 100 MILLILITER
  5. DEXAMETHASONE. [Suspect]
     Active Substance: DEXAMETHASONE
     Dosage: 8 MILLIGRAM, PER CHEMO REGIM
     Route: 042
  6. FILGRASTIM HEXAL [Suspect]
     Active Substance: FILGRASTIM
     Indication: BLOOD STEM CELL HARVEST
     Dosage: 435 UNK, 1
     Route: 058
     Dates: start: 20201110, end: 20201116
  7. DEXAMETHASONE. [Suspect]
     Active Substance: DEXAMETHASONE
     Indication: PLASMA CELL MYELOMA
     Dosage: 28 MILLIGRAM, PER CHEMO REGIM
     Route: 048
     Dates: start: 20200716
  8. LENALIDOMIDE [Suspect]
     Active Substance: LENALIDOMIDE
     Indication: PLASMA CELL MYELOMA
     Dosage: 25 MILLIGRAM, PER CHEMO REGIM
     Route: 048
     Dates: start: 20200716
  9. PARACETAMOL [Concomitant]
     Active Substance: ACETAMINOPHEN
     Indication: PYREXIA
     Dosage: 1 GRAM, 1
     Route: 048
     Dates: start: 20201117, end: 20201117

REACTIONS (2)
  - Febrile infection [Recovered/Resolved]
  - Neutropenia [Recovered/Resolved]

NARRATIVE: CASE EVENT DATE: 20201118
